FAERS Safety Report 9858921 (Version 2)
Quarter: 2014Q1

REPORT INFORMATION
  Report Type: Spontaneous
  Country: JP (occurrence: JP)
  Receive Date: 20140131
  Receipt Date: 20140206
  Transmission Date: 20141002
  Serious: Yes (Disabling)
  Sender: FDA-Public Use
  Company Number: JP-B.I. PHARMACEUTICALS,INC./RIDGEFIELD-2014-BI-03603NB

PATIENT
  Age: 84 Year
  Sex: Female

DRUGS (4)
  1. SPIRIVA [Suspect]
     Indication: ASTHMA
     Dosage: 18 MCG
     Route: 055
  2. THEODUR / THEOPHYLLINE [Concomitant]
     Dosage: 200 MG
     Route: 065
  3. ADOAIR / SALMETEROL XINAFOATE_FLUTICASONE PROPIONATE [Concomitant]
     Route: 065
  4. HOKUNALIN:TAPE / TULOBUTEROL [Concomitant]
     Dosage: 2 MG
     Route: 062

REACTIONS (1)
  - Cerebral infarction [Unknown]
